FAERS Safety Report 8337867-0 (Version None)
Quarter: 2012Q2

REPORT INFORMATION
  Report Type: 
  Country: None (occurrence: None)
  Receive Date: 20120504
  Receipt Date: 20120424
  Transmission Date: 20120825
  Serious: Yes (Hospitalization)
  Sender: FDA-Public Use
  Company Number: IT-ELI_LILLY_AND_COMPANY-IT201204007573

PATIENT
  Sex: Male

DRUGS (6)
  1. ENOXAPARIN SODIUM [Concomitant]
     Dosage: 4000 DF, QD
     Route: 058
     Dates: start: 20120403, end: 20120419
  2. DOBETIN [Concomitant]
     Dosage: 1000 DF, QD
     Route: 030
     Dates: start: 20120404, end: 20120404
  3. FOLIC ACID [Concomitant]
     Dosage: UNK, QD
     Route: 048
     Dates: start: 20120404, end: 20120404
  4. ALIMTA [Suspect]
     Indication: LUNG ADENOCARCINOMA
     Dosage: 800 MG, UNK
     Route: 042
     Dates: start: 20120410, end: 20120410
  5. CARBOPLATIN [Concomitant]
     Indication: LUNG ADENOCARCINOMA
     Dosage: 375 DF, UNK
     Route: 042
     Dates: start: 20120410, end: 20120410
  6. PREDNISONE TAB [Concomitant]
     Dosage: 50 DF, QD
     Route: 048
     Dates: start: 20120409, end: 20120411

REACTIONS (4)
  - DIARRHOEA [None]
  - HYPOTENSION [None]
  - THROMBOCYTOPENIA [None]
  - NEUTROPENIA [None]
